FAERS Safety Report 20929275 (Version 1)
Quarter: 2022Q2

REPORT INFORMATION
  Report Type: Spontaneous
  Country: BR (occurrence: BR)
  Receive Date: 20220608
  Receipt Date: 20220608
  Transmission Date: 20220721
  Serious: Yes (Hospitalization, Other)
  Sender: FDA-Public Use
  Company Number: BR-NOVOPROD-924021

PATIENT
  Age: 3 Year
  Sex: Male
  Weight: 12.2 kg

DRUGS (3)
  1. NOVORAPID [Suspect]
     Active Substance: INSULIN ASPART
     Indication: Type 1 diabetes mellitus
     Dosage: 7 IU, QD (2 IU AT MORNING+ 2IU AT LUNCH + 1 IU AT SNACKS + 2 IU AT DINNER)
     Route: 058
  2. NOVORAPID [Suspect]
     Active Substance: INSULIN ASPART
     Dosage: INFUSION SYSTEM
     Route: 058
     Dates: start: 201807
  3. TRESIBA [Suspect]
     Active Substance: INSULIN DEGLUDEC
     Indication: Type 1 diabetes mellitus
     Dosage: 8 IU, QD
     Route: 065

REACTIONS (3)
  - Diabetic ketoacidosis [Unknown]
  - Hypoglycaemia [Unknown]
  - Hyperglycaemia [Unknown]
